FAERS Safety Report 11863712 (Version 2)
Quarter: 2016Q1

REPORT INFORMATION
  Report Type: Spontaneous
  Country: FR (occurrence: FR)
  Receive Date: 20151223
  Receipt Date: 20160225
  Transmission Date: 20160526
  Serious: Yes (Hospitalization)
  Sender: FDA-Public Use
  Company Number: FR-PFIZER INC-2015463815

PATIENT
  Age: 84 Year
  Sex: Female

DRUGS (2)
  1. SPIRONOLACTONE ALTIZIDE [Suspect]
     Active Substance: ALTHIAZIDE\SPIRONOLACTONE
     Indication: HYPERTENSION
     Dosage: 15MG/25MG
     Dates: start: 201510, end: 2015
  2. SPIRONOLACTONE. [Suspect]
     Active Substance: SPIRONOLACTONE
     Indication: HYPERTENSION
     Dosage: UNK

REACTIONS (7)
  - Depressed level of consciousness [Recovered/Resolved]
  - Medication error [Recovered/Resolved]
  - Drug dispensing error [Recovered/Resolved]
  - Dehydration [Recovered/Resolved]
  - Wrong drug administered [Recovered/Resolved]
  - Blood sodium abnormal [Recovered/Resolved]
  - Blood potassium abnormal [Recovered/Resolved]

NARRATIVE: CASE EVENT DATE: 201510
